FAERS Safety Report 25739907 (Version 3)
Quarter: 2025Q4

REPORT INFORMATION
  Report Type: Spontaneous
  Country: US (occurrence: US)
  Receive Date: 20250829
  Receipt Date: 20251018
  Transmission Date: 20260118
  Serious: Yes (Other)
  Sender: ACCORD
  Company Number: US-Accord-502556

PATIENT
  Age: 57 Year
  Sex: Male
  Weight: 84.8 kg

DRUGS (6)
  1. FLUOROURACIL [Suspect]
     Active Substance: FLUOROURACIL
     Indication: Rectosigmoid cancer stage III
     Dosage: 3 CYCLES; 5000 MG OVER 48 HOURS (1200 MG/M2/DAY)
     Route: 042
  2. OXALIPLATIN [Concomitant]
     Active Substance: OXALIPLATIN
     Indication: Rectosigmoid cancer stage III
     Dosage: 3 CYCLES FOLLOWED BY INPATIENT 3 CYCLES-OP
  3. LEUCOVORIN [Concomitant]
     Active Substance: LEUCOVORIN\LEUCOVORIN CALCIUM
     Indication: Rectosigmoid cancer stage III
     Dosage: 3 CYCLES FOLLOWED BY INPATIENT 3 CYCLES-OP
  4. NIFEDIPINE [Concomitant]
     Active Substance: NIFEDIPINE
     Indication: Hypertension
  5. ISOSORBIDE MONONITRATE [Concomitant]
     Active Substance: ISOSORBIDE MONONITRATE
     Indication: Hypertension
  6. ISOSORBIDE DINITRATE [Concomitant]
     Active Substance: ISOSORBIDE DINITRATE
     Indication: Hypertension

REACTIONS (3)
  - Arteriospasm coronary [Recovered/Resolved]
  - Ventricular tachycardia [Unknown]
  - Acute myocardial infarction [Unknown]
